FAERS Safety Report 25796771 (Version 1)
Quarter: 2025Q3

REPORT INFORMATION
  Report Type: Spontaneous
  Country: US (occurrence: US)
  Receive Date: 20250912
  Receipt Date: 20250912
  Transmission Date: 20251020
  Serious: No
  Sender: ANI
  Company Number: US-ANIPHARMA-2025-US-017603

PATIENT
  Age: 80 Year
  Sex: Female
  Weight: 68.95 kg

DRUGS (3)
  1. CORTICOTROPIN [Suspect]
     Active Substance: CORTICOTROPIN
     Indication: Sarcoidosis
     Route: 058
     Dates: end: 20250409
  2. FUROSEMIDE [Concomitant]
     Active Substance: FUROSEMIDE
  3. GABAPENTIN [Concomitant]
     Active Substance: GABAPENTIN

REACTIONS (6)
  - Pain in extremity [Not Recovered/Not Resolved]
  - Peripheral swelling [Recovering/Resolving]
  - Intentional dose omission [Unknown]
  - Contraindicated product administered [Recovered/Resolved]
  - Intentional product misuse [Unknown]
  - Condition aggravated [Recovering/Resolving]

NARRATIVE: CASE EVENT DATE: 20250201
